FAERS Safety Report 18001155 (Version 2)
Quarter: 2020Q3

REPORT INFORMATION
  Report Type: Spontaneous
  Country: CR (occurrence: CR)
  Receive Date: 20200709
  Receipt Date: 20200721
  Transmission Date: 20201103
  Serious: Yes (Hospitalization, Other)
  Sender: FDA-Public Use
  Company Number: CR-ASTRAZENECA-2020SE84972

PATIENT
  Age: 91 Year
  Sex: Female

DRUGS (5)
  1. FORXIGA [Suspect]
     Active Substance: DAPAGLIFLOZIN
     Indication: TYPE 2 DIABETES MELLITUS
     Dosage: 10 MG 1/2 TABLET
     Route: 048
     Dates: start: 201901, end: 20200701
  2. PROTON [Concomitant]
     Active Substance: OMEPRAZOLE
  3. COREG [Concomitant]
     Active Substance: CARVEDILOL
     Dosage: 12.5, TWO TABLETS PER DAY
     Route: 048
  4. CRESTOR [Suspect]
     Active Substance: ROSUVASTATIN CALCIUM
     Indication: DYSLIPIDAEMIA
     Dosage: 1/2 TABLET DAILY
     Route: 048
  5. LEXOTAN [Concomitant]
     Active Substance: BROMAZEPAM
     Dosage: ?? TABLET EVERY NIGHT
     Route: 048

REACTIONS (8)
  - Vulval haemorrhage [Recovering/Resolving]
  - Tinea infection [Recovering/Resolving]
  - Erythema [Recovering/Resolving]
  - Vulval disorder [Recovering/Resolving]
  - Vulvovaginitis [Recovering/Resolving]
  - Vulvovaginal pruritus [Recovering/Resolving]
  - Vulvitis [Recovering/Resolving]
  - Off label use [Unknown]
